FAERS Safety Report 4636062-6 (Version None)
Quarter: 2005Q2

REPORT INFORMATION
  Report Type: 
  Country: None (occurrence: None)
  Receive Date: 20050415
  Receipt Date: 20050216
  Transmission Date: 20051028
  Serious: Yes (Other)
  Sender: FDA-Public Use
  Company Number: PHEH2005US02158

PATIENT
  Age: 42 Year
  Sex: Male
  Weight: 78 kg

DRUGS (6)
  1. DIOVAN [Suspect]
     Indication: HYPERTENSION
     Dosage: 80 MG, QD
     Route: 048
     Dates: start: 20040130, end: 20050225
  2. DIOVAN [Suspect]
     Dosage: 40 MG, BID
     Route: 048
     Dates: end: 20050225
  3. ZIAC [Concomitant]
     Dosage: 2.5 MG, QD
  4. METOPROLOL TARTRATE [Concomitant]
     Dosage: 12.5 MG, PRN
     Route: 048
     Dates: end: 20040206
  5. ASPIRIN [Concomitant]
     Dosage: 81 MG, QD
     Route: 048
  6. MULTIVITAMIN PREPARATIONS WITH OR W/O MINERAL [Concomitant]
     Dosage: UNK, QD
     Route: 048

REACTIONS (16)
  - ABNORMAL SENSATION IN EYE [None]
  - BLOOD ALBUMIN INCREASED [None]
  - CONDUCTION DISORDER [None]
  - EYE DISORDER [None]
  - EYELID DISORDER [None]
  - FEELING ABNORMAL [None]
  - HOT FLUSH [None]
  - MUSCLE SPASMS [None]
  - MUSCLE TIGHTNESS [None]
  - PARATHYROID DISORDER [None]
  - PHARMACEUTICAL PRODUCT COMPLAINT [None]
  - RASH [None]
  - TACHYCARDIA [None]
  - THYROXIN BINDING GLOBULIN [None]
  - TREMOR [None]
  - VISION BLURRED [None]
